FAERS Safety Report 16025716 (Version 1)
Quarter: 2019Q1

REPORT INFORMATION
  Report Type: Spontaneous
  Country: ES (occurrence: ES)
  Receive Date: 20190302
  Receipt Date: 20190302
  Transmission Date: 20190418
  Serious: Yes (Other)
  Sender: FDA-Public Use
  Company Number: ES-ACCORD-110177

PATIENT
  Age: 77 Year
  Sex: Male
  Weight: 71 kg

DRUGS (5)
  1. PRAVASTATIN. [Suspect]
     Active Substance: PRAVASTATIN
     Indication: TYPE IIA HYPERLIPIDAEMIA
     Route: 048
     Dates: start: 20170926, end: 20180822
  2. LOSARTAN. [Concomitant]
     Active Substance: LOSARTAN
     Indication: ESSENTIAL HYPERTENSION
     Dosage: STRENGTH 50 MG
     Route: 048
     Dates: start: 20120413
  3. DUTASTERIDE/TAMSULOSIN HYDROCHLORIDE [Concomitant]
     Indication: PROSTATITIS
     Dosage: STRENGTH 0.5 MG / 0.4 MG
     Route: 048
     Dates: start: 20110819
  4. OMEPRAZOLE. [Concomitant]
     Active Substance: OMEPRAZOLE
     Indication: LARYNGITIS
     Dosage: STRENGTH 20 MG
     Route: 048
     Dates: start: 20121106
  5. TIMOLOL MALEATE/BIMATOPROST [Concomitant]
     Indication: GLAUCOMA
     Dosage: STRENGTH 0.3 MG / ML + 5 MG / ML

REACTIONS (2)
  - Tendon rupture [Not Recovered/Not Resolved]
  - Myalgia [Not Recovered/Not Resolved]

NARRATIVE: CASE EVENT DATE: 20180822
